FAERS Safety Report 10642415 (Version 1)
Quarter: 2014Q4

REPORT INFORMATION
  Report Type: Spontaneous
  Country: US (occurrence: None)
  Receive Date: 20141208
  Receipt Date: 20141208
  Transmission Date: 20150529
  Serious: Yes (Other)
  Sender: FDA-Public Use
  Company Number: None

PATIENT
  Age: 53 Year
  Sex: Female
  Weight: 79.38 kg

DRUGS (3)
  1. CYMBALTA [Suspect]
     Active Substance: DULOXETINE HYDROCHLORIDE
     Indication: DEPRESSION
     Dosage: 1PILL ONCE DAILY
     Dates: start: 20141122, end: 20141129
  2. CYMBALTA [Suspect]
     Active Substance: DULOXETINE HYDROCHLORIDE
     Indication: PAIN
     Dosage: 1PILL ONCE DAILY
     Dates: start: 20141122, end: 20141129
  3. CYMBALTA [Suspect]
     Active Substance: DULOXETINE HYDROCHLORIDE
     Indication: CHIKUNGUNYA VIRUS INFECTION
     Dosage: 1PILL ONCE DAILY
     Dates: start: 20141122, end: 20141129

REACTIONS (7)
  - Constipation [None]
  - Anxiety [None]
  - Pain [None]
  - Dysuria [None]
  - Poor quality sleep [None]
  - Feeling abnormal [None]
  - Condition aggravated [None]

NARRATIVE: CASE EVENT DATE: 20141122
